FAERS Safety Report 9522279 (Version 1)
Quarter: 2013Q3

REPORT INFORMATION
  Report Type: Spontaneous
  Country: SK (occurrence: SK)
  Receive Date: 20130913
  Receipt Date: 20130913
  Transmission Date: 20140515
  Serious: Yes (Hospitalization)
  Sender: FDA-Public Use
  Company Number: PHHY2013SK100968

PATIENT
  Age: 23 Year
  Sex: Male

DRUGS (2)
  1. LEPONEX / CLOZARIL (CLOZAPINE) [Suspect]
     Dosage: UNK
     Route: 048
  2. LEPONEX / CLOZARIL (CLOZAPINE) [Suspect]
     Dosage: 7 DF, ONCE/SINGLE

REACTIONS (4)
  - Miosis [Unknown]
  - Increased upper airway secretion [Unknown]
  - Somnolence [Unknown]
  - Overdose [Unknown]
